FAERS Safety Report 15393458 (Version 1)
Quarter: 2018Q3

REPORT INFORMATION
  Report Type: Other
  Country: US (occurrence: US)
  Receive Date: 20180917
  Receipt Date: 20180917
  Transmission Date: 20181010
  Serious: No
  Sender: FDA-Public Use
  Company Number: US-LEADIANT BIOSCIENCES INC-2017STPI000808

PATIENT
  Sex: Male

DRUGS (11)
  1. METFORMIN [Concomitant]
     Active Substance: METFORMIN HYDROCHLORIDE
  2. DILANTIN [Concomitant]
     Active Substance: PHENYTOIN
  3. MATULANE [Suspect]
     Active Substance: PROCARBAZINE HYDROCHLORIDE
     Dosage: 100 MG, DAYS 18 TO 21
  4. CLONAZEPAM. [Concomitant]
     Active Substance: CLONAZEPAM
  5. MATULANE [Suspect]
     Active Substance: PROCARBAZINE HYDROCHLORIDE
     Indication: BRAIN NEOPLASM MALIGNANT
     Dosage: 150 MG, HS DAYS 8 TO 17
     Route: 048
     Dates: start: 20170729
  6. LEVETIRACETAM. [Concomitant]
     Active Substance: LEVETIRACETAM
  7. GABAPENTIN. [Concomitant]
     Active Substance: GABAPENTIN
  8. ADDERALL [Concomitant]
     Active Substance: AMPHETAMINE ASPARTATE\AMPHETAMINE SULFATE\DEXTROAMPHETAMINE SACCHARATE\DEXTROAMPHETAMINE SULFATE
  9. MORPHINE [Concomitant]
     Active Substance: MORPHINE
  10. LEXAPRO [Concomitant]
     Active Substance: ESCITALOPRAM OXALATE
  11. SENNA LAXATIVE [Concomitant]
     Active Substance: SENNOSIDES

REACTIONS (1)
  - Nausea [Not Recovered/Not Resolved]
